FAERS Safety Report 8200477-X (Version None)
Quarter: 2012Q1

REPORT INFORMATION
  Report Type: 
  Country: None (occurrence: None)
  Receive Date: 20120306
  Receipt Date: 20120220
  Transmission Date: 20120608
  Serious: Yes (Other)
  Sender: FDA-Public Use
  Company Number: FK201200493

PATIENT
  Age: 68 Year
  Sex: Male

DRUGS (2)
  1. PEGFILGRASTIM (PEGFILGRASTIM) [Suspect]
     Indication: LYMPHOMA
     Dosage: UNKNOWN, SINGLE CYCLE OF TREATMENT, UNKNOWN
  2. FLUDARABINE (MANUFACTURER UNKNOWN) (FLUDARABINE PHOSPHATE) (FLUDARABIN [Suspect]
     Indication: LYMPHOMA
     Dosage: UNKNOWN, SINGLE CYCLE OF TREATMENT, UNKNOWN

REACTIONS (1)
  - MYELODYSPLASTIC SYNDROME [None]
